FAERS Safety Report 16219800 (Version 1)
Quarter: 2019Q2

REPORT INFORMATION
  Report Type: Spontaneous
  Country: FR (occurrence: FR)
  Receive Date: 20190420
  Receipt Date: 20190420
  Transmission Date: 20190711
  Serious: Yes (Other)
  Sender: FDA-Public Use
  Company Number: FR-AUROBINDO-AUR-APL-2019-021111

PATIENT

DRUGS (7)
  1. PREDNISONE TABLET [Suspect]
     Active Substance: PREDNISONE
     Indication: APLASIA PURE RED CELL
     Dosage: 2.5 MG, QD
     Route: 065
  2. ERYTHROPOIETIN [Suspect]
     Active Substance: ERYTHROPOIETIN
     Indication: APLASIA PURE RED CELL
     Dosage: UNK
     Route: 065
  3. HYDROXYCHLOROQUINE [Suspect]
     Active Substance: HYDROXYCHLOROQUINE
     Indication: APLASIA PURE RED CELL
     Dosage: UNK
     Route: 065
  4. TN [Suspect]
     Active Substance: TROLNITRATE
     Indication: APLASIA PURE RED CELL
     Dosage: UNK
     Route: 042
  5. RITUXIMAB. [Suspect]
     Active Substance: RITUXIMAB
     Indication: APLASIA PURE RED CELL
     Dosage: UNK
     Route: 065
  6. PREDNISONE TABLET [Suspect]
     Active Substance: PREDNISONE
     Dosage: 120 MG, QD
     Route: 065
  7. CICLOSPORIN [Suspect]
     Active Substance: CYCLOSPORINE
     Indication: APLASIA PURE RED CELL
     Dosage: UNK
     Route: 065

REACTIONS (1)
  - Therapeutic product effect variable [Unknown]
